FAERS Safety Report 9272251 (Version 1)
Quarter: 2013Q2

REPORT INFORMATION
  Report Type: Spontaneous
  Country: US (occurrence: US)
  Receive Date: 20130506
  Receipt Date: 20130506
  Transmission Date: 20140414
  Serious: No
  Sender: FDA-Public Use
  Company Number: US-ASTRAZENECA-2013SE14533

PATIENT
  Age: 36 Year
  Sex: Male

DRUGS (3)
  1. PRILOSEC OTC [Suspect]
     Route: 048
  2. PRISTIQ [Concomitant]
  3. ROMECTOL [Concomitant]

REACTIONS (3)
  - Throat irritation [Recovered/Resolved]
  - Gastrointestinal pain [Recovered/Resolved]
  - Glossodynia [Recovered/Resolved]
